FAERS Safety Report 8530586-7 (Version None)
Quarter: 2012Q3

REPORT INFORMATION
  Report Type: 
  Country: None (occurrence: None)
  Receive Date: 20120723
  Receipt Date: 20120710
  Transmission Date: 20120928
  Serious: Yes (Hospitalization)
  Sender: FDA-Public Use
  Company Number: FR-MSD-1207FRA000854

PATIENT

DRUGS (3)
  1. REBETOL [Suspect]
     Indication: HEPATITIS C
  2. VIRAFERONPEG [Suspect]
     Indication: HEPATITIS C
  3. VICTRELIS [Suspect]
     Indication: HEPATITIS C

REACTIONS (1)
  - ANAEMIA [None]
